FAERS Safety Report 9741069 (Version 1)
Quarter: 2013Q4

REPORT INFORMATION
  Report Type: Spontaneous
  Country: US (occurrence: US)
  Receive Date: 20131209
  Receipt Date: 20131209
  Transmission Date: 20140711
  Serious: No
  Sender: FDA-Public Use
  Company Number: US-009507513-1311USA000260

PATIENT
  Sex: Female

DRUGS (1)
  1. JANUVIA [Suspect]

REACTIONS (2)
  - Pollakiuria [Recovered/Resolved]
  - Accidental exposure to product [Recovered/Resolved]
